FAERS Safety Report 6335912-5 (Version None)
Quarter: 2009Q3

REPORT INFORMATION
  Report Type: 
  Country: None (occurrence: None)
  Receive Date: 20090826
  Receipt Date: 20090623
  Transmission Date: 20100115
  Serious: No
  Sender: FDA-Public Use
  Company Number: 09-094

PATIENT
  Age: 65 Year
  Sex: Male

DRUGS (5)
  1. PREDNISONE [Suspect]
     Indication: RHEUMATOID ARTHRITIS
     Dosage: 5MG, BID, PO
     Route: 048
  2. FUROSEMIDE [Concomitant]
  3. LANTUS [Concomitant]
  4. GLIPIZIDE [Concomitant]
  5. POTASSIUM CHLORIDE [Concomitant]

REACTIONS (1)
  - WEIGHT INCREASED [None]
